FAERS Safety Report 23388390 (Version 1)
Quarter: 2024Q1

REPORT INFORMATION
  Report Type: Spontaneous
  Country: US (occurrence: None)
  Receive Date: 20240110
  Receipt Date: 20240110
  Transmission Date: 20240409
  Serious: No
  Sender: FDA-Public Use
  Company Number: None

PATIENT
  Age: 56 Year
  Sex: Female
  Weight: 69.2 kg

DRUGS (2)
  1. CARBOPLATIN [Suspect]
     Active Substance: CARBOPLATIN
     Dates: end: 20231122
  2. TAXOL [Suspect]
     Active Substance: PACLITAXEL
     Dates: end: 20231122

REACTIONS (1)
  - Neutropenia [None]

NARRATIVE: CASE EVENT DATE: 20231220
